FAERS Safety Report 6254106-5 (Version None)
Quarter: 2009Q2

REPORT INFORMATION
  Report Type: 
  Country: None (occurrence: None)
  Receive Date: 20090630
  Receipt Date: 20090630
  Transmission Date: 20091009
  Serious: Yes (Hospitalization)
  Sender: FDA-Public Use
  Company Number: None

PATIENT
  Age: 79 Year
  Sex: Male
  Weight: 81.5 kg

DRUGS (10)
  1. OLANZAPINE [Suspect]
     Indication: SCHIZOPHRENIA
     Dosage: 5MG-10MG PO
     Route: 048
     Dates: start: 20080907, end: 20080921
  2. OLANZAPINE [Suspect]
     Dosage: 15MG PO
     Route: 048
     Dates: start: 20080928
  3. ALBUTEROL/IPRATROPIUM BR INHALER [Concomitant]
  4. TYLENOL [Concomitant]
  5. ATENOLOL [Concomitant]
  6. CODEINE 30/ACETAMINOPHEN [Concomitant]
  7. DOCUSATE SODIUM [Concomitant]
  8. FOSINOPRIL SODIUM [Concomitant]
  9. GEMFIBROZIL [Concomitant]
  10. TRAZODONE HCL [Concomitant]

REACTIONS (11)
  - ATELECTASIS [None]
  - BRONCHIAL NEOPLASM [None]
  - BRONCHIAL OBSTRUCTION [None]
  - COLLAPSE OF LUNG [None]
  - CONSTIPATION [None]
  - FALL [None]
  - FOREIGN BODY ASPIRATION [None]
  - LUNG NEOPLASM MALIGNANT [None]
  - METASTASES TO LYMPH NODES [None]
  - PNEUMONIA [None]
  - RENAL FAILURE ACUTE [None]
